FAERS Safety Report 13460487 (Version 1)
Quarter: 2017Q2

REPORT INFORMATION
  Report Type: Spontaneous
  Country: US (occurrence: US)
  Receive Date: 20170420
  Receipt Date: 20170420
  Transmission Date: 20170830
  Serious: No
  Sender: FDA-Public Use
  Company Number: US-PFIZER INC-2017170408

PATIENT
  Sex: Male

DRUGS (2)
  1. LYRICA [Suspect]
     Active Substance: PREGABALIN
     Indication: ANXIETY
  2. LYRICA [Suspect]
     Active Substance: PREGABALIN
     Indication: ATTENTION DEFICIT/HYPERACTIVITY DISORDER
     Dosage: 150 MG

REACTIONS (3)
  - Product use in unapproved indication [Unknown]
  - Dizziness [Unknown]
  - Malaise [Unknown]
